FAERS Safety Report 4345981-X (Version None)
Quarter: 2004Q2

REPORT INFORMATION
  Report Type: 
  Country: None (occurrence: None)
  Receive Date: 20040423
  Receipt Date: 20040413
  Transmission Date: 20050107
  Serious: Yes (Death, Other)
  Sender: FDA-Public Use
  Company Number: FLUV00204001024

PATIENT
  Age: 42 Year
  Sex: Male

DRUGS (1)
  1. LUVOX [Suspect]
     Indication: ILL-DEFINED DISORDER
     Dosage: DAILY PO
     Route: 048

REACTIONS (5)
  - ALCOHOLISM [None]
  - COMPLETED SUICIDE [None]
  - GUN SHOT WOUND [None]
  - MURDER [None]
  - PHYSICAL ASSAULT [None]
